FAERS Safety Report 11135951 (Version 1)
Quarter: 2015Q2

REPORT INFORMATION
  Report Type: Spontaneous
  Country: US (occurrence: US)
  Receive Date: 20150526
  Receipt Date: 20150526
  Transmission Date: 20150821
  Serious: No
  Sender: FDA-Public Use
  Company Number: US-MALLINCKRODT-T201501854

PATIENT
  Age: 34 Year
  Sex: Female

DRUGS (1)
  1. H.P. ACTHAR [Suspect]
     Active Substance: CORTICOTROPIN
     Indication: LUPUS NEPHRITIS
     Dosage: 40 UNITS, 2X A WEEK
     Route: 030
     Dates: start: 20150320

REACTIONS (5)
  - Fatigue [Not Recovered/Not Resolved]
  - Feeling drunk [Unknown]
  - Agitation [Recovered/Resolved]
  - Alopecia [Unknown]
  - Dyspnoea [Recovered/Resolved]

NARRATIVE: CASE EVENT DATE: 2015
